FAERS Safety Report 20577409 (Version 2)
Quarter: 2022Q1

REPORT INFORMATION
  Report Type: Spontaneous
  Country: US (occurrence: US)
  Receive Date: 20220310
  Receipt Date: 20220324
  Transmission Date: 20220424
  Serious: Yes (Other)
  Sender: FDA-Public Use
  Company Number: US-TEVA-2022-US-2014093

PATIENT
  Age: 70 Year
  Sex: Male

DRUGS (1)
  1. CISPLATIN [Suspect]
     Active Substance: CISPLATIN
     Indication: Squamous cell carcinoma
     Dosage: STARTED 6 DAYS PRIOR TO PRESENTATION
     Route: 065

REACTIONS (2)
  - Leukopenia [Unknown]
  - Acute kidney injury [Unknown]
